FAERS Safety Report 11205914 (Version 1)
Quarter: 2015Q2

REPORT INFORMATION
  Report Type: Spontaneous
  Country: US (occurrence: US)
  Receive Date: 20150622
  Receipt Date: 20150622
  Transmission Date: 20150821
  Serious: No
  Sender: FDA-Public Use
  Company Number: US-TAKEDA-2005-00802

PATIENT

DRUGS (10)
  1. AZACITIDINE. [Concomitant]
     Active Substance: AZACITIDINE
     Indication: MYELODYSPLASTIC SYNDROME
     Dosage: 100.00 MG, UNK
     Route: 058
  2. NEXIUM [Concomitant]
     Active Substance: ESOMEPRAZOLE MAGNESIUM
     Dosage: 40.00 MG, QD
  3. PREDNISONE. [Concomitant]
     Active Substance: PREDNISONE
     Dosage: 5.00 MG, QD
  4. VELCADE [Suspect]
     Active Substance: BORTEZOMIB
     Indication: ACCIDENTAL EXPOSURE TO PRODUCT
     Dosage: 3.50 MG, SINGLE
     Route: 058
     Dates: start: 20050413, end: 20050413
  5. ASA [Concomitant]
     Active Substance: ASPIRIN
     Dosage: UNK, QD
  6. TRIAMTERENE AND HYDROCHLOROTHIAZID [Concomitant]
     Active Substance: HYDROCHLOROTHIAZIDE\TRIAMTERENE
     Dosage: 1.00 UNK, QD
  7. LIPITOR [Concomitant]
     Active Substance: ATORVASTATIN CALCIUM
     Dosage: 10.00 MG, QOD
  8. TOPROL XL [Concomitant]
     Active Substance: METOPROLOL SUCCINATE
     Dosage: 50.00 MG, QD
  9. CARDURA [Concomitant]
     Active Substance: DOXAZOSIN MESYLATE
     Dosage: 2.00 MG, QD
  10. AVAPRO [Concomitant]
     Active Substance: IRBESARTAN
     Dosage: UNK MG, QD

REACTIONS (4)
  - Injection site erythema [Recovered/Resolved]
  - Product name confusion [Unknown]
  - Administration site reaction [Recovered/Resolved]
  - Wrong drug administered [Unknown]

NARRATIVE: CASE EVENT DATE: 20050413
